FAERS Safety Report 14779479 (Version 2)
Quarter: 2018Q3

REPORT INFORMATION
  Report Type: Report from Study
  Country: US (occurrence: US)
  Receive Date: 20180419
  Receipt Date: 20180723
  Transmission Date: 20181010
  Serious: Yes (Other)
  Sender: FDA-Public Use
  Company Number: US-GILEAD-2018-0332415

PATIENT
  Sex: Female

DRUGS (3)
  1. ELVITEGRAVIR [Suspect]
     Active Substance: ELVITEGRAVIR
     Indication: HIV INFECTION
     Dosage: 150 MG, QD
     Route: 064
     Dates: end: 20160303
  2. COBICISTAT [Suspect]
     Active Substance: COBICISTAT
     Indication: HIV INFECTION
     Dosage: 150 MG, QD
     Route: 064
     Dates: end: 20160303
  3. PHYTONADIONE. [Concomitant]
     Active Substance: PHYTONADIONE
     Dosage: UNKNOWN DOSE BEFORE ANY BLOOD WORK
     Route: 030

REACTIONS (2)
  - Foetal exposure during pregnancy [Recovered/Resolved]
  - Blood creatinine increased [Recovered/Resolved]

NARRATIVE: CASE EVENT DATE: 20160303
